FAERS Safety Report 9095893 (Version 1)
Quarter: 2013Q1

REPORT INFORMATION
  Report Type: Spontaneous
  Country: US (occurrence: US)
  Receive Date: 20130220
  Receipt Date: 20130220
  Transmission Date: 20140127
  Serious: Yes (Other)
  Sender: FDA-Public Use
  Company Number: US-ELI_LILLY_AND_COMPANY-US201302004296

PATIENT
  Sex: Male

DRUGS (3)
  1. CIALIS [Suspect]
     Indication: ERECTILE DYSFUNCTION
     Dosage: 5 MG, QD
     Dates: end: 20130201
  2. DIOVAN [Concomitant]
  3. LIPITOR [Concomitant]

REACTIONS (1)
  - Diplopia [Not Recovered/Not Resolved]
